FAERS Safety Report 23663728 (Version 1)
Quarter: 2024Q1

REPORT INFORMATION
  Report Type: Spontaneous
  Country: US (occurrence: US)
  Receive Date: 20240322
  Receipt Date: 20240322
  Transmission Date: 20240409
  Serious: No
  Sender: FDA-Public Use
  Company Number: US-SANOFI-01983366

PATIENT
  Age: 75 Year
  Sex: Female

DRUGS (4)
  1. TOUJEO MAX [Suspect]
     Active Substance: INSULIN GLARGINE
     Indication: Type 2 diabetes mellitus
     Dosage: OVERDOSING WITH THE 60 UNITS THAT WAS ORIGINALLY PRESCRIBED
  2. TOUJEO MAX [Suspect]
     Active Substance: INSULIN GLARGINE
     Dosage: 30 UNITS QD AND DRUG TREATMENT DURATION:15 DAYS
  3. TRESIBA [Concomitant]
     Active Substance: INSULIN DEGLUDEC
  4. GLIPIZIDE [Concomitant]
     Active Substance: GLIPIZIDE

REACTIONS (10)
  - Aggression [Not Recovered/Not Resolved]
  - Confusional state [Not Recovered/Not Resolved]
  - Amnesia [Not Recovered/Not Resolved]
  - Depression [Not Recovered/Not Resolved]
  - Hyperhidrosis [Not Recovered/Not Resolved]
  - Irritability [Not Recovered/Not Resolved]
  - Personality change [Not Recovered/Not Resolved]
  - Anger [Not Recovered/Not Resolved]
  - Blood glucose decreased [Not Recovered/Not Resolved]
  - Product prescribing error [Unknown]
